FAERS Safety Report 13413619 (Version 1)
Quarter: 2017Q2

REPORT INFORMATION
  Report Type: Spontaneous
  Country: US (occurrence: US)
  Receive Date: 20170407
  Receipt Date: 20170407
  Transmission Date: 20170830
  Serious: Yes (Hospitalization, Other)
  Sender: FDA-Public Use
  Company Number: US-ASTRAZENECA-2017SE35311

PATIENT
  Age: 47 Year
  Sex: Male
  Weight: 93.4 kg

DRUGS (7)
  1. METOPROLOL SUCCINATE. [Suspect]
     Active Substance: METOPROLOL SUCCINATE
     Indication: HYPERTENSION
     Dosage: 25.0MG UNKNOWN
     Route: 048
     Dates: start: 1995
  2. LEVOMIR [Concomitant]
     Indication: DIABETES MELLITUS
     Dosage: AT NIGHT
  3. NOVOLOG [Concomitant]
     Active Substance: INSULIN ASPART
     Indication: DIABETES MELLITUS
     Dosage: IN THE AM
  4. PLAVIX [Concomitant]
     Active Substance: CLOPIDOGREL BISULFATE
     Indication: CARDIAC DISORDER
     Route: 048
     Dates: start: 2011
  5. ATORVASTATIN [Concomitant]
     Active Substance: ATORVASTATIN
     Indication: BLOOD CHOLESTEROL ABNORMAL
     Route: 048
     Dates: start: 1995
  6. LISINOPRIL. [Suspect]
     Active Substance: LISINOPRIL
     Indication: HYPERTENSION
     Dosage: 20.0MG UNKNOWN
     Route: 048
     Dates: start: 1995
  7. BYDUREON [Suspect]
     Active Substance: EXENATIDE
     Indication: TYPE 2 DIABETES MELLITUS
     Route: 058
     Dates: start: 20170204, end: 20170325

REACTIONS (14)
  - Weight decreased [Unknown]
  - Heart rate increased [Unknown]
  - Abdominal pain upper [Unknown]
  - Cardiac disorder [Unknown]
  - Anxiety [Unknown]
  - Asthenia [Unknown]
  - Intentional product misuse [Unknown]
  - Decreased appetite [Unknown]
  - Dyspnoea [Unknown]
  - Palpitations [Unknown]
  - Headache [Unknown]
  - Mood swings [Unknown]
  - Irritability [Unknown]
  - Nausea [Unknown]

NARRATIVE: CASE EVENT DATE: 1998
